FAERS Safety Report 11894391 (Version 1)
Quarter: 2016Q1

REPORT INFORMATION
  Report Type: Spontaneous
  Country: US (occurrence: None)
  Receive Date: 20160106
  Receipt Date: 20160106
  Transmission Date: 20160526
  Serious: No
  Sender: FDA-Public Use
  Company Number: None

PATIENT
  Age: 79 Year
  Sex: Male
  Weight: 80.4 kg

DRUGS (2)
  1. LENALIDOMIDE (CC-5013) [Suspect]
     Active Substance: LENALIDOMIDE
     Dates: end: 20150804
  2. RITUXIMAB [Suspect]
     Active Substance: RITUXIMAB
     Dates: end: 20150716

REACTIONS (4)
  - Leukopenia [None]
  - Myelodysplastic syndrome [None]
  - Mantle cell lymphoma [None]
  - Platelet count decreased [None]

NARRATIVE: CASE EVENT DATE: 20150804
